FAERS Safety Report 25214185 (Version 1)
Quarter: 2025Q2

REPORT INFORMATION
  Report Type: Spontaneous
  Country: ES (occurrence: ES)
  Receive Date: 20250418
  Receipt Date: 20250418
  Transmission Date: 20250717
  Serious: Yes (Other)
  Sender: PFIZER
  Company Number: None

PATIENT
  Age: 32 Year
  Sex: Female

DRUGS (1)
  1. TOVIAZ [Suspect]
     Active Substance: FESOTERODINE FUMARATE
     Indication: Breast cancer
     Route: 048
     Dates: start: 20250313, end: 20250327

REACTIONS (6)
  - Dizziness [Recovered/Resolved]
  - Visual impairment [Recovered/Resolved]
  - Stomatitis [Recovered/Resolved]
  - Sensation of foreign body [Recovered/Resolved]
  - Fatigue [Recovered/Resolved]
  - Off label use [Unknown]

NARRATIVE: CASE EVENT DATE: 20250313
